FAERS Safety Report 5381473-7 (Version None)
Quarter: 2007Q3

REPORT INFORMATION
  Report Type: 
  Country: None (occurrence: None)
  Receive Date: 20070705
  Receipt Date: 20070705
  Transmission Date: 20080115
  Serious: Yes (Hospitalization)
  Sender: FDA-Public Use
  Company Number: None

PATIENT
  Sex: Female
  Weight: 80.2867 kg

DRUGS (2)
  1. OCTAGAM [Suspect]
     Indication: IMMUNODEFICIENCY COMMON VARIABLE
     Dosage: OCTAGAM 48 GMS IV MONTHLY IV LESS THAN 4 HRS
     Route: 042
     Dates: start: 20070703, end: 20070703
  2. OCTAGAM [Suspect]

REACTIONS (6)
  - BODY TEMPERATURE INCREASED [None]
  - CHEST DISCOMFORT [None]
  - HEADACHE [None]
  - INFUSION RELATED REACTION [None]
  - NAUSEA [None]
  - VOMITING [None]
